FAERS Safety Report 8577153-7 (Version None)
Quarter: 2012Q3

REPORT INFORMATION
  Report Type: 
  Country: None (occurrence: None)
  Receive Date: 20120807
  Receipt Date: 20120730
  Transmission Date: 20120928
  Serious: Yes (Other)
  Sender: FDA-Public Use
  Company Number: AU-JNJFOC-20120800936

PATIENT
  Sex: Female

DRUGS (1)
  1. REMICADE [Suspect]
     Indication: ANKYLOSING SPONDYLITIS
     Route: 042
     Dates: end: 20120101

REACTIONS (5)
  - FATIGUE [None]
  - VISUAL IMPAIRMENT [None]
  - GAIT DISTURBANCE [None]
  - DIZZINESS [None]
  - LOWER RESPIRATORY TRACT INFECTION [None]
